FAERS Safety Report 13145975 (Version 1)
Quarter: 2017Q1

REPORT INFORMATION
  Report Type: Spontaneous
  Country: SE (occurrence: SE)
  Receive Date: 20170124
  Receipt Date: 20170124
  Transmission Date: 20170428
  Serious: Yes (Hospitalization)
  Sender: FDA-Public Use
  Company Number: SE-ROCHE-1882589

PATIENT
  Age: 71 Year
  Sex: Female

DRUGS (14)
  1. ARTHROTEC [Concomitant]
     Active Substance: DICLOFENAC SODIUM\MISOPROSTOL
     Route: 065
  2. CALCICHEW D3 [Concomitant]
     Active Substance: CALCIUM\CHOLECALCIFEROL
     Route: 065
  3. POSTAFEN (SWEDEN) [Concomitant]
     Route: 065
  4. DETRUSITOL [Concomitant]
     Active Substance: TOLTERODINE TARTRATE
     Route: 065
  5. PANODIL [Concomitant]
     Active Substance: ACETAMINOPHEN
     Route: 065
  6. LISINOPRIL. [Concomitant]
     Active Substance: LISINOPRIL
     Route: 065
  7. METFORMIN [Concomitant]
     Active Substance: METFORMIN HYDROCHLORIDE
     Route: 065
  8. SALURES [Concomitant]
     Active Substance: BENDROFLUMETHIAZIDE
     Route: 065
  9. ACETYLCYSTEIN [Concomitant]
     Active Substance: ACETYLCYSTEINE
     Route: 065
  10. MABTHERA [Suspect]
     Active Substance: RITUXIMAB
     Indication: RHEUMATOID ARTHRITIS
     Route: 042
  11. DOLCONTIN [Concomitant]
     Active Substance: MORPHINE
     Route: 065
  12. KREDEX [Concomitant]
     Active Substance: CARVEDILOL
     Route: 065
  13. MINDIAB [Concomitant]
     Active Substance: GLIPIZIDE
     Route: 065
  14. ALENAT [Concomitant]
     Active Substance: ALENDRONATE SODIUM
     Route: 065

REACTIONS (1)
  - Agranulocytosis [Recovered/Resolved]

NARRATIVE: CASE EVENT DATE: 20141116
